FAERS Safety Report 13959350 (Version 1)
Quarter: 2017Q3

REPORT INFORMATION
  Report Type: Spontaneous
  Country: GB (occurrence: GB)
  Receive Date: 20170912
  Receipt Date: 20170912
  Transmission Date: 20171128
  Serious: Yes (Life-Threatening, Hospitalization, Other)
  Sender: FDA-Public Use
  Company Number: GB-TORRENT-00006524

PATIENT
  Age: 27 Year
  Sex: Female

DRUGS (4)
  1. FLUOXETINE [Concomitant]
     Active Substance: FLUOXETINE HYDROCHLORIDE
  2. BETAMETHASONE VALERATE. [Suspect]
     Active Substance: BETAMETHASONE VALERATE
  3. METFORMIN [Concomitant]
     Active Substance: METFORMIN HYDROCHLORIDE
  4. OLANZAPINE. [Suspect]
     Active Substance: OLANZAPINE

REACTIONS (9)
  - Glycosuria [Unknown]
  - Insulin resistance [Unknown]
  - Ketoacidosis [Recovered/Resolved]
  - Abdominal pain upper [Unknown]
  - Exposure during pregnancy [Unknown]
  - Vomiting [Unknown]
  - Hypophagia [Unknown]
  - Gestational diabetes [Not Recovered/Not Resolved]
  - Hyperglycaemia [Not Recovered/Not Resolved]
